FAERS Safety Report 8051010-7 (Version None)
Quarter: 2012Q1

REPORT INFORMATION
  Report Type: 
  Country: None (occurrence: None)
  Receive Date: 20120117
  Receipt Date: 20120111
  Transmission Date: 20120608
  Serious: Yes (Hospitalization, Other)
  Sender: FDA-Public Use
  Company Number: PHEH2012US001114

PATIENT
  Sex: Male

DRUGS (4)
  1. NEORAL [Suspect]
     Indication: LIVER TRANSPLANT
     Dosage: 25 MG, BID
  2. IRON [Suspect]
  3. ZYPREXA [Concomitant]
     Dosage: 20 MG, UNK
  4. NADOLOL [Concomitant]
     Indication: BLOOD PRESSURE
     Dosage: 20 MG, UNK

REACTIONS (4)
  - NASOPHARYNGITIS [None]
  - CEREBRAL HAEMORRHAGE [None]
  - HEPATIC HAEMORRHAGE [None]
  - IMMUNE SYSTEM DISORDER [None]
